FAERS Safety Report 10930431 (Version 2)
Quarter: 2015Q3

REPORT INFORMATION
  Report Type: Spontaneous
  Country: US (occurrence: US)
  Receive Date: 20150319
  Receipt Date: 20150717
  Transmission Date: 20151125
  Serious: Yes (Death, Other)
  Sender: FDA-Public Use
  Company Number: US-GLAXOSMITHKLINE-US2015GSK036450

PATIENT
  Age: 58 Year
  Sex: Female

DRUGS (1)
  1. PROMACTA [Suspect]
     Active Substance: ELTROMBOPAG OLAMINE
     Indication: WHITE BLOOD CELL DISORDER
     Dosage: 150 MG, QD
     Route: 048
     Dates: start: 20140729, end: 20150925

REACTIONS (3)
  - Death [Fatal]
  - Treatment failure [Unknown]
  - Disease progression [Unknown]

NARRATIVE: CASE EVENT DATE: 20140925
